FAERS Safety Report 9331616 (Version 2)
Quarter: 2013Q2

REPORT INFORMATION
  Report Type: Spontaneous
  Country: US (occurrence: None)
  Receive Date: 20130603
  Receipt Date: 20130620
  Transmission Date: 20140414
  Serious: Yes (Death, Congenital Anomaly)
  Sender: FDA-Public Use
  Company Number: UTC-033384

PATIENT
  Age: 23 Year
  Sex: Male
  Weight: 61.81 kg

DRUGS (2)
  1. REMODULIN (5 MILLIGRAM/MILLILITERS, INJECTION FOR INFUSION) (TREPROSTINIL SODIUM) [Suspect]
     Indication: COR PULMONALE CHRONIC
     Dosage: 1 IN 1MIN
     Route: 050
     Dates: start: 20120308
  2. TRACLEER [Concomitant]

REACTIONS (3)
  - Death [None]
  - Heart disease congenital [None]
  - Condition aggravated [None]
